FAERS Safety Report 14859306 (Version 2)
Quarter: 2018Q3

REPORT INFORMATION
  Report Type: Report from Study
  Country: US (occurrence: US)
  Receive Date: 20180508
  Receipt Date: 20180706
  Transmission Date: 20181010
  Serious: Yes (Other)
  Sender: FDA-Public Use
  Company Number: US-CIPLA (EU) LIMITED-2018US17259

PATIENT

DRUGS (3)
  1. VINORELBINE [Suspect]
     Active Substance: VINORELBINE\VINORELBINE TARTRATE
     Indication: SYNOVIAL SARCOMA
     Dosage: 25 MG/M2, ON DAY 1 AND DAY 8 EVERY 21 DAYS
  2. PEMBROLIZUMAB. [Suspect]
     Active Substance: PEMBROLIZUMAB
     Indication: SYNOVIAL SARCOMA
     Dosage: 2 MG/KG, OVER 30 MIN EVERY 21 DAYS
  3. GEMCITABINE [Suspect]
     Active Substance: GEMCITABINE\GEMCITABINE HYDROCHLORIDE
     Indication: SYNOVIAL SARCOMA
     Dosage: 1000 MG/M2, ON DAY 1 AND DAY 8 EVERY 21 DAYS.

REACTIONS (15)
  - White blood cell count decreased [Unknown]
  - Thrombocytopenia [Unknown]
  - Constipation [Unknown]
  - Rash [Unknown]
  - Hypothyroidism [Unknown]
  - Mucosal infection [Unknown]
  - Hyperphosphataemia [Unknown]
  - Aspartate aminotransferase increased [Unknown]
  - Neutropenia [Unknown]
  - Anaemia [Unknown]
  - Insomnia [Unknown]
  - Headache [Unknown]
  - Alanine aminotransferase increased [Unknown]
  - Pyrexia [Unknown]
  - Malignant neoplasm progression [Unknown]
